FAERS Safety Report 19027482 (Version 3)
Quarter: 2021Q3

REPORT INFORMATION
  Report Type: Spontaneous
  Country: US (occurrence: US)
  Receive Date: 20210318
  Receipt Date: 20210830
  Transmission Date: 20211014
  Serious: No
  Sender: FDA-Public Use
  Company Number: US-LUPIN PHARMACEUTICALS INC.-2021-03221

PATIENT
  Age: 49 Year
  Sex: Male

DRUGS (3)
  1. ALBUTEROL SULFATE INHALATION AEROSOL, 90 MCG/ACTUATION [Suspect]
     Active Substance: ALBUTEROL SULFATE
     Indication: ASTHMA
     Dosage: UNK
     Dates: start: 202102
  2. ALBUTEROL SULFATE INHALATION AEROSOL, 90 MCG/ACTUATION [Suspect]
     Active Substance: ALBUTEROL SULFATE
     Dosage: UNK
     Dates: start: 202102
  3. ALBUTEROL SULFATE INHALATION AEROSOL, 90 MCG/ACTUATION [Suspect]
     Active Substance: ALBUTEROL SULFATE
     Dosage: UNK
     Dates: start: 202102

REACTIONS (4)
  - Wrong technique in product usage process [Unknown]
  - Condition aggravated [Unknown]
  - Drug dose omission by device [Unknown]
  - Device malfunction [Unknown]
